FAERS Safety Report 6132979-4 (Version None)
Quarter: 2009Q1

REPORT INFORMATION
  Report Type: 
  Country: None (occurrence: None)
  Receive Date: 20090326
  Receipt Date: 20090310
  Transmission Date: 20090719
  Serious: Yes (Other)
  Sender: FDA-Public Use
  Company Number: US-PFIZER INC-2008051546

PATIENT
  Sex: Female

DRUGS (8)
  1. PROVERA [Suspect]
     Indication: HORMONE REPLACEMENT THERAPY
     Dosage: 2.5 MG, UNK
     Route: 048
     Dates: start: 19930401, end: 19991101
  2. PROVERA [Suspect]
     Indication: HOT FLUSH
  3. PREMARIN [Suspect]
     Indication: HOT FLUSH
     Dosage: 0.625 MG, UNK
     Dates: start: 19930401, end: 19950101
  4. ESTRADERM [Suspect]
     Indication: HOT FLUSH
     Dosage: 0.05 MG, UNK
     Dates: start: 19950101, end: 19991101
  5. PLAQUENIL [Concomitant]
     Indication: ARTHRITIS
     Dosage: UNK
     Dates: start: 19960101
  6. ULTRAM [Concomitant]
     Indication: ARTHRITIS
     Dosage: UNK
     Dates: start: 19960101
  7. CELEBREX [Concomitant]
     Indication: ARTHRITIS
     Dosage: UNK
     Dates: start: 19990301, end: 20020901
  8. ZOLOFT [Concomitant]
     Indication: DEPRESSION
     Dosage: UNK
     Dates: start: 19970101, end: 20030701

REACTIONS (2)
  - ALOPECIA EFFLUVIUM [None]
  - BREAST CANCER FEMALE [None]
